FAERS Safety Report 9841734 (Version 2)
Quarter: 2014Q1

REPORT INFORMATION
  Report Type: Report from Study
  Country: BR (occurrence: BR)
  Receive Date: 20140124
  Receipt Date: 20140224
  Transmission Date: 20141002
  Serious: Yes (Death, Life-Threatening, Hospitalization, Other)
  Sender: FDA-Public Use
  Company Number: PHHY2014BR008238

PATIENT
  Sex: Female
  Weight: 68 kg

DRUGS (3)
  1. DIOVAN HCT [Suspect]
     Indication: BLOOD PRESSURE ABNORMAL
     Dosage: 2 DF (320/12.5MG) DAILY
     Route: 048
     Dates: start: 2008, end: 201209
  2. ATENOLOL [Concomitant]
     Indication: BLOOD PRESSURE ABNORMAL
     Dosage: 25 MG, UNK
     Dates: end: 201209
  3. LOSARTAN [Concomitant]
     Indication: HYPERTENSION
     Dosage: UNK UKN, UNK
     Dates: end: 201209

REACTIONS (8)
  - Brain death [Fatal]
  - Coma [Fatal]
  - Malaise [Fatal]
  - Infarction [Fatal]
  - Hypertension [Fatal]
  - Cardiac arrest [Unknown]
  - Renal impairment [Unknown]
  - Cerebral haemorrhage [Unknown]
